FAERS Safety Report 9114701 (Version 4)
Quarter: 2013Q4

REPORT INFORMATION
  Report Type: Spontaneous
  Country: US (occurrence: US)
  Receive Date: 20130128
  Receipt Date: 20131023
  Transmission Date: 20140711
  Serious: Yes (Other)
  Sender: FDA-Public Use
  Company Number: US-BAYER-2013-009910

PATIENT
  Age: 52 Year
  Sex: Female

DRUGS (2)
  1. CLIMARA PRO [Suspect]
     Dosage: UNK
     Route: 062
  2. CLIMARA PRO [Suspect]
     Route: 062

REACTIONS (5)
  - Vaginal haemorrhage [None]
  - Product adhesion issue [None]
  - Insomnia [None]
  - Hot flush [None]
  - Abdominal pain lower [None]
